FAERS Safety Report 21928581 (Version 1)
Quarter: 2023Q1

REPORT INFORMATION
  Report Type: Spontaneous
  Country: US (occurrence: US)
  Receive Date: 20230130
  Receipt Date: 20230130
  Transmission Date: 20230417
  Serious: No
  Sender: FDA-Public Use
  Company Number: US-drreddys-SPO/USA/23/0159734

PATIENT
  Age: 77 Year
  Sex: Male

DRUGS (24)
  1. LENALIDOMIDE [Suspect]
     Active Substance: LENALIDOMIDE
     Indication: Bone cancer
     Dosage: TAKE 1 CAPSULE BY MOUTH EVERY DAY ON DAYS 1-21 OF A 28 DAY CYCLE
     Route: 048
     Dates: start: 20221117
  2. Fentanyl Citrate PT7 100MCG/HR [Concomitant]
     Indication: Product used for unknown indication
  3. Naloxone Hydrochloride SOL 4MG/10ML [Concomitant]
     Indication: Product used for unknown indication
     Dosage: 4MG/10ML
  4. FINASTERIDE [Concomitant]
     Active Substance: FINASTERIDE
     Indication: Product used for unknown indication
  5. OMEPRAZOLE TBE 20MG [Concomitant]
     Indication: Product used for unknown indication
  6. COLACE CAP 100MG [Concomitant]
     Indication: Product used for unknown indication
  7. HYDROCODONE- TAB 7.5-325M [Concomitant]
     Indication: Product used for unknown indication
     Dosage: 7.5-325M
  8. LACTULOSE SOL 10GM/15ML [Concomitant]
     Indication: Product used for unknown indication
     Dosage: 10GM/15ML
  9. LIDOCAINE PTC 4 percent [Concomitant]
     Indication: Product used for unknown indication
  10. LYRICA CAP 100MG [Concomitant]
     Indication: Product used for unknown indication
  11. METHOCARBAMO TAB 750MG [Concomitant]
     Indication: Product used for unknown indication
  12. MYLANTA MAXI SUS 400-400 [Concomitant]
     Indication: Product used for unknown indication
     Dosage: 400-400
  13. SENNA TAB 8.6MG [Concomitant]
     Indication: Product used for unknown indication
  14. ACYCLOVIR [Concomitant]
     Active Substance: ACYCLOVIR
     Indication: Product used for unknown indication
  15. ASPIRIN TAB 325MG [Concomitant]
     Indication: Product used for unknown indication
  16. CALCIUM TAB 500MG [Concomitant]
     Indication: Product used for unknown indication
  17. DARZALEX SOL 400MG/20ML [Concomitant]
     Indication: Product used for unknown indication
     Dosage: 400MG/20ML
  18. DEXAMETHASON TAB 2MG [Concomitant]
     Indication: Product used for unknown indication
  19. MULTIVITAMIN TAB [Concomitant]
     Indication: Product used for unknown indication
  20. OLMESARTAN M TAB 40MG [Concomitant]
     Indication: Product used for unknown indication
  21. OSTEO BI-FLE TAB [Concomitant]
     Indication: Product used for unknown indication
  22. ROSUVASTATIN [Concomitant]
     Active Substance: ROSUVASTATIN
     Indication: Product used for unknown indication
  23. VITAMIN D TAB 50 MCG [Concomitant]
     Indication: Product used for unknown indication
  24. XGEVA SOL 120MG/1.7ML [Concomitant]
     Indication: Product used for unknown indication
     Dosage: 120MG/1.7ML

REACTIONS (1)
  - Product dose omission issue [Unknown]
